FAERS Safety Report 9151890 (Version 3)
Quarter: 2013Q2

REPORT INFORMATION
  Report Type: Spontaneous
  Country: US (occurrence: US)
  Receive Date: 20130308
  Receipt Date: 20130621
  Transmission Date: 20140414
  Serious: Yes (Hospitalization)
  Sender: FDA-Public Use
  Company Number: US-ABBOTT-13P-163-1056833-00

PATIENT
  Sex: Female
  Weight: 73.09 kg

DRUGS (20)
  1. HUMIRA [Suspect]
     Indication: RHEUMATOID ARTHRITIS
     Dates: start: 20070403
  2. HUMIRA [Suspect]
  3. QUINAPRIL [Concomitant]
     Indication: HYPERTENSION
  4. ATENOLOL [Concomitant]
     Indication: HYPERTENSION
  5. OMEPRAZOLE [Concomitant]
     Indication: PANCREATICODUODENECTOMY
  6. PREDNISONE [Concomitant]
     Indication: RHEUMATOID ARTHRITIS
  7. LIPITOR [Concomitant]
     Indication: BLOOD CHOLESTEROL INCREASED
  8. CLONAZEPAM [Concomitant]
     Indication: ANXIETY
  9. LEXAPRO [Concomitant]
     Indication: ANXIETY
  10. ALENDRONATE [Concomitant]
     Indication: BONE DISORDER
  11. LANTUS [Concomitant]
     Indication: DIABETES MELLITUS
  12. NOVOLOG [Concomitant]
     Indication: DIABETES MELLITUS
  13. ZENPEP [Concomitant]
     Indication: PANCREATICODUODENECTOMY
  14. ASPIRIN [Concomitant]
     Indication: PROPHYLAXIS
  15. POTASSIUM GLUCONATE [Concomitant]
     Indication: MINERAL SUPPLEMENTATION
  16. CRANBERRY [Concomitant]
     Indication: SUPPLEMENTATION THERAPY
  17. CALCIUM WITH VITAMIN D [Concomitant]
     Indication: MINERAL SUPPLEMENTATION
  18. GENERIC FOR CENTRUM SILVER VITAMINS [Concomitant]
     Indication: VITAMIN SUPPLEMENTATION
  19. OMEGA 3 [Concomitant]
     Indication: SUPPLEMENTATION THERAPY
  20. VITAMIN D [Concomitant]
     Indication: VITAMIN SUPPLEMENTATION

REACTIONS (10)
  - Presyncope [Recovered/Resolved]
  - Pneumonia [Recovered/Resolved]
  - Sinusitis [Recovered/Resolved]
  - Asthenia [Recovered/Resolved]
  - Dehydration [Recovered/Resolved]
  - Clostridium difficile infection [Recovered/Resolved]
  - Chronic obstructive pulmonary disease [Not Recovered/Not Resolved]
  - Fatigue [Not Recovered/Not Resolved]
  - Squamous cell carcinoma of skin [Recovered/Resolved]
  - Rheumatoid arthritis [Recovered/Resolved]
